FAERS Safety Report 6266869-3 (Version None)
Quarter: 2009Q3

REPORT INFORMATION
  Report Type: 
  Country: None (occurrence: None)
  Receive Date: 20090710
  Receipt Date: 20090710
  Transmission Date: 20100115
  Serious: No
  Sender: FDA-Public Use
  Company Number: None

PATIENT
  Age: 72 Year
  Sex: Male
  Weight: 97 kg

DRUGS (1)
  1. PIPERACILLIN SODIUM AND TAZOBACTAM SODIUM [Suspect]
     Dosage: 3.375 GM QID IV
     Route: 042
     Dates: start: 20090501, end: 20090602

REACTIONS (1)
  - TOXIC EPIDERMAL NECROLYSIS [None]
